FAERS Safety Report 9299421 (Version 1)
Quarter: 2013Q2

REPORT INFORMATION
  Report Type: Spontaneous
  Country: CH (occurrence: CH)
  Receive Date: 20130520
  Receipt Date: 20130520
  Transmission Date: 20140414
  Serious: Yes (Other)
  Sender: FDA-Public Use
  Company Number: CH-BRISTOL-MYERS SQUIBB COMPANY-18895789

PATIENT
  Sex: Male
  Weight: 1.76 kg

DRUGS (5)
  1. ABILIFY [Suspect]
     Route: 064
  2. DALMADORM [Suspect]
     Route: 064
  3. FLUCTINE [Suspect]
     Route: 064
  4. LEXOTANIL [Suspect]
  5. EUTHYROX [Suspect]
     Route: 064

REACTIONS (1)
  - Foetal growth restriction [Unknown]
